FAERS Safety Report 6149758-4 (Version None)
Quarter: 2009Q2

REPORT INFORMATION
  Report Type: 
  Country: None (occurrence: None)
  Receive Date: 20090409
  Receipt Date: 20090330
  Transmission Date: 20091009
  Serious: Yes (Hospitalization, Disabling, Other)
  Sender: FDA-Public Use
  Company Number: JP-ASTRAZENECA-2009AP02260

PATIENT
  Age: 33 Year
  Sex: Female

DRUGS (2)
  1. SEROQUEL [Suspect]
     Indication: SCHIZOPHRENIA
     Dosage: PATIENT TOOK 2 WEEK COURSE OF SEROQUEL ALL AT ONCE WITH ALCOHOL.
     Route: 048
     Dates: end: 20090322
  2. ANAFRANIL [Concomitant]
     Route: 048
     Dates: end: 20090322

REACTIONS (2)
  - CARDIO-RESPIRATORY ARREST [None]
  - OVERDOSE [None]
